FAERS Safety Report 6856751-2 (Version None)
Quarter: 2010Q2

REPORT INFORMATION
  Report Type: 
  Country: None (occurrence: None)
  Receive Date: 20100630
  Receipt Date: 20100413
  Transmission Date: 20101027
  Serious: No
  Sender: FDA-Public Use
  Company Number: 1000013173

PATIENT
  Age: 82 Year
  Sex: Male

DRUGS (7)
  1. BYSTOLIC [Suspect]
     Indication: HYPERTENSION
     Dosage: 5 MG (5 MG,  1 IN 1 D), ORAL
     Route: 048
     Dates: start: 20091001
  2. DITROPAN XL (15 MILLIGRAM, TABLETS [Concomitant]
  3. BENICAR [Concomitant]
  4. NORVASC [Concomitant]
  5. LIPITOR (10 MILLIGRAM, TABLETS) [Concomitant]
  6. ZOLOFT [Concomitant]
  7. MULTIVITAMIN (TABLETS) [Concomitant]

REACTIONS (1)
  - NAUSEA [None]
